FAERS Safety Report 22057031 (Version 1)
Quarter: 2023Q1

REPORT INFORMATION
  Report Type: Spontaneous
  Country: US (occurrence: US)
  Receive Date: 20230303
  Receipt Date: 20230303
  Transmission Date: 20230417
  Serious: No
  Sender: FDA-Public Use
  Company Number: US-APOTEX-2023AP003495

PATIENT
  Sex: Female

DRUGS (1)
  1. NICOTINE [Suspect]
     Active Substance: NICOTINE
     Indication: Product used for unknown indication
     Dosage: UNK
     Route: 065
     Dates: start: 2023, end: 2023

REACTIONS (3)
  - Illness [Unknown]
  - Abdominal pain upper [Unknown]
  - Night sweats [Unknown]

NARRATIVE: CASE EVENT DATE: 20230101
